FAERS Safety Report 21041289 (Version 1)
Quarter: 2022Q3

REPORT INFORMATION
  Report Type: Spontaneous
  Country: JP (occurrence: JP)
  Receive Date: 20220705
  Receipt Date: 20220705
  Transmission Date: 20221027
  Serious: Yes (Hospitalization)
  Sender: FDA-Public Use
  Company Number: JP-CHEPLA-2022005595

PATIENT
  Age: 75 Year
  Sex: Female

DRUGS (8)
  1. GANCICLOVIR [Suspect]
     Active Substance: GANCICLOVIR
     Dosage: IV DRIP
  2. REMICADE [Suspect]
     Active Substance: INFLIXIMAB
     Indication: Colitis ulcerative
     Dosage: IV DRIP
  3. AZATHIOPRINE [Suspect]
     Active Substance: AZATHIOPRINE
     Indication: Colitis ulcerative
     Route: 048
  4. SIMPONI [Suspect]
     Active Substance: GOLIMUMAB
     Dosage: POWDER FOR DISPERSION  FOR INJECTION
     Route: 058
  5. PREDNISOLONE [Concomitant]
     Active Substance: PREDNISOLONE
  6. VEDOLIZUMAB [Concomitant]
     Active Substance: VEDOLIZUMAB
  7. TOFACITINIB CITRATE [Concomitant]
     Active Substance: TOFACITINIB CITRATE
  8. MESALAMINE [Concomitant]
     Active Substance: MESALAMINE

REACTIONS (2)
  - Teratoma [Unknown]
  - Off label use [Unknown]
